FAERS Safety Report 8932270 (Version 2)
Quarter: 2012Q4

REPORT INFORMATION
  Report Type: 
  Country: BR (occurrence: BR)
  Receive Date: 20121128
  Receipt Date: 20121205
  Transmission Date: 20130627
  Serious: Yes (Other)
  Sender: FDA-Public Use
  Company Number: BR-PFIZER INC-2012292340

PATIENT
  Age: 68 Year
  Sex: Female
  Weight: 63 kg

DRUGS (5)
  1. CHAMPIX [Suspect]
     Indication: SMOKING CESSATION THERAPY
     Dosage: UNK
     Route: 048
     Dates: start: 20121013, end: 2012
  2. CHAMPIX [Suspect]
     Dosage: 1 tablet, 2x/day
     Route: 048
     Dates: start: 2012
  3. ALTROX [Concomitant]
     Indication: SLEEP DISORDER
     Dosage: 0.5 mg (1 tablet), 1x/day at night
  4. LANSOPRAZOL [Concomitant]
     Indication: STOMACH DISCOMFORT
     Dosage: 1 tablet (30mg) in the morning
  5. PONDERA [Concomitant]
     Indication: ANXIETY
     Dosage: 1 tablet (20mg) in the morning

REACTIONS (2)
  - Dyspnoea [Recovered/Resolved]
  - Respiratory rate increased [Recovering/Resolving]
